FAERS Safety Report 16532160 (Version 2)
Quarter: 2019Q3

REPORT INFORMATION
  Report Type: Spontaneous
  Country: BR (occurrence: BR)
  Receive Date: 20190704
  Receipt Date: 20190919
  Transmission Date: 20191004
  Serious: Yes (Hospitalization, Other)
  Sender: FDA-Public Use
  Company Number: BR-PFIZER INC-2019279940

PATIENT
  Age: 58 Year
  Sex: Male

DRUGS (2)
  1. SUTENT [Suspect]
     Active Substance: SUNITINIB MALATE
     Dosage: 50 MG, CYCLIC
  2. SUTENT [Suspect]
     Active Substance: SUNITINIB MALATE
     Dosage: UNK UNK, CYCLIC
     Dates: start: 2019, end: 201908

REACTIONS (15)
  - Pruritus [Unknown]
  - Gait disturbance [Unknown]
  - Plantar erythema [Unknown]
  - Mouth injury [Unknown]
  - Glossitis [Unknown]
  - Dry skin [Unknown]
  - Abdominal pain [Unknown]
  - Dysuria [Recovered/Resolved]
  - Nephrolithiasis [Recovered/Resolved]
  - Blister [Unknown]
  - Oral pain [Unknown]
  - Glossodynia [Unknown]
  - Feeding disorder [Unknown]
  - Blood urine present [Recovered/Resolved]
  - Tongue erythema [Unknown]

NARRATIVE: CASE EVENT DATE: 2019
